FAERS Safety Report 5880564-1 (Version None)
Quarter: 2008Q3

REPORT INFORMATION
  Report Type: 
  Country: None (occurrence: None)
  Receive Date: 20080912
  Receipt Date: 20080602
  Transmission Date: 20090109
  Serious: No
  Sender: FDA-Public Use
  Company Number: US-ABBOTT-08P-163-0454794-00

PATIENT
  Sex: Female
  Weight: 56.75 kg

DRUGS (2)
  1. HUMIRA [Suspect]
     Indication: CROHN'S DISEASE
     Dates: start: 20080201
  2. BIRTH CONTROL [Concomitant]
     Indication: CONTRACEPTION
     Route: 048
     Dates: start: 19940101

REACTIONS (3)
  - INJECTION SITE PAIN [None]
  - MALAISE [None]
  - UNDERDOSE [None]
